FAERS Safety Report 7214674-3 (Version None)
Quarter: 2011Q1

REPORT INFORMATION
  Report Type: 
  Country: None (occurrence: None)
  Receive Date: 20110107
  Receipt Date: 20110105
  Transmission Date: 20110831
  Serious: Yes (Hospitalization, Disabling)
  Sender: FDA-Public Use
  Company Number: DE-JNJFOC-20100908647

PATIENT
  Age: 82 Year
  Sex: Male

DRUGS (2)
  1. TAVANIC [Suspect]
     Indication: RESPIRATORY TRACT INFECTION
     Route: 048
  2. TAVANIC [Suspect]
     Indication: PNEUMONIA
     Route: 048

REACTIONS (7)
  - FALL [None]
  - TENDON RUPTURE [None]
  - TENDON DISORDER [None]
  - PAIN IN EXTREMITY [None]
  - TENDON PAIN [None]
  - MUSCULOSKELETAL PAIN [None]
  - BALANCE DISORDER [None]
